FAERS Safety Report 6768418-X (Version None)
Quarter: 2010Q2

REPORT INFORMATION
  Report Type: 
  Country: None (occurrence: None)
  Receive Date: 20100614
  Receipt Date: 20100607
  Transmission Date: 20101027
  Serious: Yes (Hospitalization, Other)
  Sender: FDA-Public Use
  Company Number: US-SANOFI-AVENTIS-2010SA032811

PATIENT
  Age: 70 Year
  Sex: Male

DRUGS (11)
  1. PLAVIX [Suspect]
     Route: 048
     Dates: start: 20060101, end: 20100301
  2. PLAVIX [Suspect]
     Route: 048
     Dates: start: 20060101, end: 20100301
  3. LANTUS [Suspect]
     Dosage: DOSE:11 UNIT(S)
     Route: 058
     Dates: start: 20090901
  4. ASPIRIN [Concomitant]
     Dates: start: 20060101, end: 20090101
  5. ASPIRIN [Concomitant]
     Dates: start: 20090101
  6. PRANDIN [Concomitant]
     Dates: end: 20090901
  7. LISINOPRIL [Concomitant]
  8. COREG [Concomitant]
  9. LIPITOR [Concomitant]
  10. POTASSIUM [Concomitant]
  11. FERROUS SULFATE TAB [Concomitant]

REACTIONS (14)
  - ANAEMIA [None]
  - ARRHYTHMIA [None]
  - BLOOD GLUCOSE DECREASED [None]
  - CONTUSION [None]
  - FALL [None]
  - GASTROINTESTINAL HAEMORRHAGE [None]
  - HAEMATOCRIT DECREASED [None]
  - HAEMOGLOBIN DECREASED [None]
  - IN-STENT CORONARY ARTERY RESTENOSIS [None]
  - INJECTION SITE HAEMORRHAGE [None]
  - LARGE INTESTINE CARCINOMA [None]
  - MYOCARDIAL INFARCTION [None]
  - PLATELET COUNT DECREASED [None]
  - VENTRICULAR TACHYCARDIA [None]
